FAERS Safety Report 10037099 (Version 1)
Quarter: 2014Q1

REPORT INFORMATION
  Report Type: Spontaneous
  Country: US (occurrence: None)
  Receive Date: 20140325
  Receipt Date: 20140325
  Transmission Date: 20141002
  Serious: Yes (Other)
  Sender: FDA-Public Use
  Company Number: None

PATIENT
  Age: 43 Year
  Sex: Female
  Weight: 104.33 kg

DRUGS (1)
  1. HOT DETOX [Suspect]
     Indication: WEIGHT CONTROL
     Dosage: 2 PILL A DAY ?TWICE DAILY?TAKEN BY MOUTH?
     Route: 048
     Dates: start: 20140324

REACTIONS (4)
  - Menorrhagia [None]
  - Menstruation irregular [None]
  - Uterine leiomyoma [None]
  - Abdominal pain upper [None]
